FAERS Safety Report 21816294 (Version 8)
Quarter: 2023Q2

REPORT INFORMATION
  Report Type: Report from Study
  Country: CN (occurrence: CN)
  Receive Date: 20230104
  Receipt Date: 20230407
  Transmission Date: 20230722
  Serious: Yes (Hospitalization)
  Sender: FDA-Public Use
  Company Number: CN-JNJFOC-20221251947

PATIENT
  Age: 60 Year
  Sex: Male
  Weight: 61 kg

DRUGS (23)
  1. BORTEZOMIB [Suspect]
     Active Substance: BORTEZOMIB
     Indication: Plasma cell myeloma
     Dosage: 0.88 MILLILITER
     Route: 058
     Dates: start: 20221216, end: 20221219
  2. DARATUMUMAB [Suspect]
     Active Substance: DARATUMUMAB
     Indication: Plasma cell myeloma
     Dosage: 15 MILLILITER
     Route: 058
     Dates: start: 20221216, end: 20221216
  3. DEXAMETHASONE [Suspect]
     Active Substance: DEXAMETHASONE
     Indication: Plasma cell myeloma
     Dosage: 20 MILLIGRAM
     Route: 048
     Dates: start: 20221216, end: 20221220
  4. ESZOPICLONE [Concomitant]
     Active Substance: ESZOPICLONE
     Indication: Sleep disorder
     Dosage: 3 MILLIGRAM, QD
     Route: 048
     Dates: start: 20210501
  5. OXYGEN [Concomitant]
     Active Substance: OXYGEN
     Indication: Hypoxia
     Dosage: UNK
     Route: 065
     Dates: start: 20221224, end: 20230106
  6. TALC POWDER [Concomitant]
     Indication: Haemorrhoids
     Dosage: UNK
     Route: 061
     Dates: start: 20221206
  7. ESOMEPRAZOLE [Concomitant]
     Active Substance: ESOMEPRAZOLE
     Indication: Prophylaxis against gastrointestinal ulcer
     Dosage: 40 MILLIGRAM
     Route: 048
     Dates: start: 20221216
  8. FAMOTIDINE [Concomitant]
     Active Substance: FAMOTIDINE
     Indication: Sleep disorder
     Dosage: 20 MILLIGRAM, QD
     Route: 048
     Dates: start: 20221219, end: 20221219
  9. FAMOTIDINE [Concomitant]
     Active Substance: FAMOTIDINE
     Dosage: 20 MILLIGRAM, BID
     Route: 048
     Dates: start: 20221220, end: 20230105
  10. FAMOTIDINE [Concomitant]
     Active Substance: FAMOTIDINE
     Dosage: 20 MILLIGRAM, BID
     Route: 048
     Dates: start: 20230106, end: 20230106
  11. POTASSIUM CHLORIDE [Concomitant]
     Active Substance: POTASSIUM CHLORIDE
     Indication: Hypokalaemia
     Dosage: 10 MILLILITER, QD
     Route: 048
     Dates: start: 20221223, end: 20221223
  12. POTASSIUM CHLORIDE [Concomitant]
     Active Substance: POTASSIUM CHLORIDE
     Dosage: 10 MILLILITER, TID
     Route: 048
     Dates: start: 20221224, end: 20221226
  13. POTASSIUM CHLORIDE [Concomitant]
     Active Substance: POTASSIUM CHLORIDE
     Dosage: 15 MILLILITER, QD
     Route: 042
     Dates: start: 20221225, end: 20221225
  14. POTASSIUM CHLORIDE [Concomitant]
     Active Substance: POTASSIUM CHLORIDE
     Dosage: 15 MILLILITER, QD
     Route: 042
     Dates: start: 20221226, end: 20221227
  15. POTASSIUM CHLORIDE [Concomitant]
     Active Substance: POTASSIUM CHLORIDE
     Dosage: 10 MILLILITER, TID
     Route: 048
     Dates: start: 20221227, end: 20230102
  16. POTASSIUM CHLORIDE [Concomitant]
     Active Substance: POTASSIUM CHLORIDE
     Dosage: 10 MILLILITER, QD
     Route: 042
     Dates: start: 20221228, end: 20221228
  17. POTASSIUM CHLORIDE [Concomitant]
     Active Substance: POTASSIUM CHLORIDE
     Dosage: 15 MILLILITER, QD
     Route: 042
     Dates: start: 20221229, end: 20221231
  18. POTASSIUM CHLORIDE [Concomitant]
     Active Substance: POTASSIUM CHLORIDE
     Dosage: 10 MILLILITER, QD
     Route: 048
     Dates: start: 20230103, end: 20230103
  19. VITAMINS [Concomitant]
     Active Substance: VITAMINS
     Indication: Vitamin supplementation
     Dosage: UNK, QD
     Route: 042
     Dates: start: 20221226, end: 20221227
  20. VITAMINS [Concomitant]
     Active Substance: VITAMINS
     Dosage: UNK, QD
     Route: 042
     Dates: start: 20221229, end: 20221231
  21. ALPRAZOLAM [Concomitant]
     Active Substance: ALPRAZOLAM
     Indication: Sleep disorder
     Dosage: 0.4 MILLIGRAM, QD
     Route: 048
     Dates: start: 20221228, end: 20221228
  22. COD LIVER OIL [Concomitant]
     Active Substance: COD LIVER OIL
     Indication: Nasal dryness
     Dosage: UNK, QD
     Route: 045
     Dates: start: 20221228, end: 20221229
  23. CARBOHYDRATES\FATTY ACIDS\MINERALS\PROTEIN\VITAMINS [Concomitant]
     Active Substance: CARBOHYDRATES\FATTY ACIDS\MINERALS\PROTEIN\VITAMINS
     Indication: Nutritional supplementation
     Dosage: 10 GRAM, QD
     Route: 048
     Dates: start: 20221229

REACTIONS (2)
  - COVID-19 pneumonia [Recovering/Resolving]
  - COVID-19 [Not Recovered/Not Resolved]

NARRATIVE: CASE EVENT DATE: 20221220
